FAERS Safety Report 9200389 (Version 1)
Quarter: 2013Q1

REPORT INFORMATION
  Report Type: Spontaneous
  Country: US (occurrence: US)
  Receive Date: 20130329
  Receipt Date: 20130329
  Transmission Date: 20140127
  Serious: Yes (Hospitalization)
  Sender: FDA-Public Use
  Company Number: US-AMGEN-USASP2013021046

PATIENT
  Age: 57 Year
  Sex: Female

DRUGS (1)
  1. ENBREL [Suspect]
     Indication: RHEUMATOID ARTHRITIS
     Dosage: 50 MG, QMO
     Dates: start: 19990101

REACTIONS (13)
  - Chronic obstructive pulmonary disease [Recovered/Resolved]
  - Impaired healing [Recovered/Resolved]
  - Rheumatoid nodule [Recovered/Resolved]
  - Cough [Recovered/Resolved]
  - Dyspnoea [Recovered/Resolved]
  - Pain in extremity [Not Recovered/Not Resolved]
  - Nephrolithiasis [Not Recovered/Not Resolved]
  - Bunion [Recovered/Resolved]
  - Condition aggravated [Recovered/Resolved]
  - Local swelling [Recovered/Resolved]
  - Injection site reaction [Recovered/Resolved]
  - Infection [Recovered/Resolved]
  - Gingival abscess [Recovered/Resolved]
